FAERS Safety Report 6357486-5 (Version None)
Quarter: 2009Q3

REPORT INFORMATION
  Report Type: 
  Country: None (occurrence: None)
  Receive Date: 20090916
  Receipt Date: 20090909
  Transmission Date: 20100115
  Serious: Yes (Other)
  Sender: FDA-Public Use
  Company Number: US-ALLERGAN-0912768US

PATIENT
  Sex: Female

DRUGS (3)
  1. BOTOX [Suspect]
     Indication: DRUG USE FOR UNKNOWN INDICATION
  2. RESTYLANE [Concomitant]
  3. PERLANE [Concomitant]

REACTIONS (4)
  - ASTHENIA [None]
  - DYSPHAGIA [None]
  - FACIAL PARESIS [None]
  - INJECTION SITE HAEMORRHAGE [None]
